FAERS Safety Report 14167442 (Version 1)
Quarter: 2017Q4

REPORT INFORMATION
  Report Type: Spontaneous
  Country: US (occurrence: US)
  Receive Date: 20171107
  Receipt Date: 20171107
  Transmission Date: 20180321
  Serious: Yes (Hospitalization)
  Sender: FDA-Public Use
  Company Number: US-VIFOR (INTERNATIONAL) INC.-VIT-2017-12104

PATIENT
  Age: 47 Year
  Sex: Male

DRUGS (1)
  1. VELTASSA [Suspect]
     Active Substance: PATIROMER
     Indication: PRODUCT USED FOR UNKNOWN INDICATION
     Route: 065
     Dates: start: 20170903, end: 20170903

REACTIONS (5)
  - Hospitalisation [Unknown]
  - Dizziness [Unknown]
  - Diarrhoea [Unknown]
  - Hypotension [Unknown]
  - Dehydration [Unknown]

NARRATIVE: CASE EVENT DATE: 20170903
